FAERS Safety Report 15095987 (Version 1)
Quarter: 2018Q3

REPORT INFORMATION
  Report Type: Report from Study
  Country: CN (occurrence: CN)
  Receive Date: 20180702
  Receipt Date: 20180702
  Transmission Date: 20181010
  Serious: Yes (Hospitalization)
  Sender: FDA-Public Use
  Company Number: CN-ACCORD-068986

PATIENT
  Age: 34 Year
  Sex: Female

DRUGS (1)
  1. METHOTREXATE. [Suspect]
     Active Substance: METHOTREXATE
     Indication: PLACENTA ACCRETA
     Dosage: 50 MG/M 2 , INFUSED EVERY OTHER DAY
     Route: 050

REACTIONS (2)
  - Transaminases abnormal [Unknown]
  - Pyrexia [Recovered/Resolved]
